FAERS Safety Report 21280097 (Version 1)
Quarter: 2022Q3

REPORT INFORMATION
  Report Type: Spontaneous
  Country: US (occurrence: None)
  Receive Date: 20220831
  Receipt Date: 20220831
  Transmission Date: 20221027
  Serious: Yes (Hospitalization, Other)
  Sender: FDA-Public Use
  Company Number: None

PATIENT
  Age: 30 Year
  Sex: Female
  Weight: 60.75 kg

DRUGS (1)
  1. TIZANIDINE HYDROCHLORIDE [Suspect]
     Active Substance: TIZANIDINE HYDROCHLORIDE
     Indication: Muscle tightness
     Dosage: FREQUENCY : AS NEEDED;?
     Route: 048
     Dates: start: 20220529, end: 20220702

REACTIONS (1)
  - Visual snow syndrome [None]

NARRATIVE: CASE EVENT DATE: 20220610
